FAERS Safety Report 16840453 (Version 1)
Quarter: 2019Q3

REPORT INFORMATION
  Report Type: Spontaneous
  Country: AU (occurrence: AU)
  Receive Date: 20190923
  Receipt Date: 20190923
  Transmission Date: 20191005
  Serious: Yes (Other)
  Sender: FDA-Public Use
  Company Number: AU-PFIZER INC-2019307763

PATIENT
  Age: 79 Year
  Sex: Female

DRUGS (1)
  1. CRIZOTINIB [Suspect]
     Active Substance: CRIZOTINIB
     Indication: LUNG ADENOCARCINOMA
     Dosage: 250 MG, 2X/DAY
     Dates: start: 201907

REACTIONS (3)
  - Infective exacerbation of chronic obstructive airways disease [Unknown]
  - Pneumothorax [Unknown]
  - Emphysema [Unknown]

NARRATIVE: CASE EVENT DATE: 20190901
